FAERS Safety Report 8215010-6 (Version None)
Quarter: 2012Q1

REPORT INFORMATION
  Report Type: 
  Country: None (occurrence: None)
  Receive Date: 20120229
  Receipt Date: 20110616
  Transmission Date: 20120608
  Serious: Yes (Hospitalization)
  Sender: FDA-Public Use
  Company Number: PHHY2011US53484

PATIENT
  Age: 69 Year
  Sex: Male

DRUGS (5)
  1. PREDNISONE [Concomitant]
  2. IMURAN [Concomitant]
  3. NEORAL [Suspect]
     Dosage: 150 MG (100 MG IN MORNING AND 50 MG IN EVENING)
  4. NORVASC [Concomitant]
  5. VITAMIN D [Concomitant]

REACTIONS (3)
  - BRONCHITIS [None]
  - DYSPNOEA [None]
  - SEASONAL ALLERGY [None]
